FAERS Safety Report 6252685-5 (Version None)
Quarter: 2009Q3

REPORT INFORMATION
  Report Type: 
  Country: None (occurrence: None)
  Receive Date: 20090701
  Receipt Date: 20090629
  Transmission Date: 20100115
  Serious: Yes (Death)
  Sender: FDA-Public Use
  Company Number: US-ASTRAZENECA-2009UW17213

PATIENT
  Age: 12 Year
  Sex: Male

DRUGS (6)
  1. SYMBICORT [Suspect]
     Indication: ASTHMA
     Route: 055
  2. XOPENEX [Suspect]
  3. ZOLOFT [Suspect]
  4. RISPERIDONE [Concomitant]
  5. ALLEGRA [Concomitant]
  6. CONCERTA [Concomitant]

REACTIONS (1)
  - DEATH [None]
